FAERS Safety Report 25386054 (Version 1)
Quarter: 2025Q2

REPORT INFORMATION
  Report Type: Spontaneous
  Country: RU (occurrence: RU)
  Receive Date: 20250602
  Receipt Date: 20250602
  Transmission Date: 20250717
  Serious: Yes (Other)
  Sender: ABBVIE
  Company Number: RU-JNJFOC-20250535918

PATIENT

DRUGS (1)
  1. IMBRUVICA [Suspect]
     Active Substance: IBRUTINIB
     Indication: Chronic lymphocytic leukaemia
     Route: 048

REACTIONS (8)
  - Neutropenia [Unknown]
  - Hyperleukocytosis [Unknown]
  - Rash [Unknown]
  - Haemorrhage [Unknown]
  - Anaemia [Unknown]
  - Thrombocytopenia [Unknown]
  - Hepatic cytolysis [Unknown]
  - Tachycardia [Unknown]
